FAERS Safety Report 8242554-3 (Version None)
Quarter: 2012Q1

REPORT INFORMATION
  Report Type: 
  Country: None (occurrence: None)
  Receive Date: 20120329
  Receipt Date: 20120326
  Transmission Date: 20120608
  Serious: Yes (Death)
  Sender: FDA-Public Use
  Company Number: PHHY2012JP026403

PATIENT
  Age: 83 Year
  Sex: Female

DRUGS (5)
  1. EXELON [Suspect]
     Indication: DEMENTIA ALZHEIMER'S TYPE
     Dosage: 4.5 MG DAILY
     Route: 062
     Dates: start: 20111025
  2. DIOVAN [Concomitant]
  3. EXELON [Suspect]
     Dosage: 18 MG DAILY
     Route: 062
  4. ASPIRIN [Concomitant]
  5. CADUET [Concomitant]

REACTIONS (2)
  - DEATH [None]
  - SKIN DISORDER [None]
